FAERS Safety Report 10151793 (Version 2)
Quarter: 2014Q2

REPORT INFORMATION
  Report Type: Spontaneous
  Country: US (occurrence: US)
  Receive Date: 20140505
  Receipt Date: 20140606
  Transmission Date: 20141212
  Serious: Yes (Other)
  Sender: FDA-Public Use
  Company Number: US-BEH-2014042062

PATIENT
  Age: 24 Month
  Sex: Female

DRUGS (2)
  1. IMMUNOGLOBULIN G (IVIG) [Suspect]
     Indication: HYPOGAMMAGLOBULINAEMIA
     Route: 042
  2. IMMUNOGLOBULIN G (IVIG) [Suspect]
     Indication: INFECTION
     Route: 042

REACTIONS (4)
  - Anaphylactoid reaction [Unknown]
  - Respiratory distress [Unknown]
  - Urticaria [Unknown]
  - Vital functions abnormal [Unknown]
